FAERS Safety Report 4709819-0 (Version None)
Quarter: 2005Q3

REPORT INFORMATION
  Report Type: 
  Country: None (occurrence: None)
  Receive Date: 20050708
  Receipt Date: 20050511
  Transmission Date: 20060218
  Serious: Yes (Hospitalization)
  Sender: FDA-Public Use
  Company Number: US-MERCK-0505USA01543

PATIENT
  Sex: Female
  Weight: 93 kg

DRUGS (11)
  1. VIOXX [Suspect]
     Indication: ARTHRITIS
     Route: 048
     Dates: start: 19990101, end: 20040901
  2. [THERAPY UNSPECIFIED] [Concomitant]
     Indication: DECREASED APPETITE
     Route: 065
     Dates: end: 20020627
  3. PRAVACHOL [Concomitant]
     Indication: BLOOD CHOLESTEROL INCREASED
     Route: 065
     Dates: start: 19990101, end: 20010101
  4. PROZAC [Concomitant]
     Indication: DEPRESSION
     Route: 065
     Dates: start: 19950101
  5. XANAX [Concomitant]
     Indication: ANXIETY
     Route: 065
     Dates: start: 19980101
  6. DIGITEK [Concomitant]
     Route: 065
     Dates: start: 20030101
  7. COUMADIN [Concomitant]
     Route: 065
     Dates: start: 20020601
  8. LOPRESSOR [Concomitant]
     Route: 065
     Dates: start: 20030101, end: 20030101
  9. CARDIZEM [Concomitant]
     Route: 065
     Dates: start: 20030101, end: 20030301
  10. LIPITOR [Concomitant]
     Route: 065
     Dates: start: 20020101
  11. ELAVIL [Concomitant]
     Route: 065
     Dates: start: 20030101

REACTIONS (29)
  - ANAEMIA [None]
  - ANAEMIA POSTOPERATIVE [None]
  - ANXIETY [None]
  - ATRIAL FIBRILLATION [None]
  - AZOTAEMIA [None]
  - CARDIAC FAILURE CONGESTIVE [None]
  - COAGULOPATHY [None]
  - DEHYDRATION [None]
  - DEPRESSION [None]
  - DIARRHOEA [None]
  - DIFFICULTY IN WALKING [None]
  - DIZZINESS [None]
  - DYSPNOEA [None]
  - FATIGUE [None]
  - HIATUS HERNIA [None]
  - HYPERTENSIVE HEART DISEASE [None]
  - HYPOKALAEMIA [None]
  - HYPOMAGNESAEMIA [None]
  - HYPONATRAEMIA [None]
  - INFLUENZA LIKE ILLNESS [None]
  - METABOLIC ACIDOSIS [None]
  - MITRAL VALVE INCOMPETENCE [None]
  - OSTEOARTHRITIS [None]
  - OSTEOPOROSIS POSTMENOPAUSAL [None]
  - OVERDOSE [None]
  - POST-TRAUMATIC STRESS DISORDER [None]
  - RENAL FAILURE CHRONIC [None]
  - THROMBOSIS [None]
  - URINARY TRACT INFECTION [None]
